FAERS Safety Report 6832414-4 (Version None)
Quarter: 2010Q3

REPORT INFORMATION
  Report Type: 
  Country: None (occurrence: None)
  Receive Date: 20100712
  Receipt Date: 20070310
  Transmission Date: 20110219
  Serious: No
  Sender: FDA-Public Use
  Company Number: US-PFIZER INC-2007020470

PATIENT
  Sex: Female
  Weight: 57.15 kg

DRUGS (7)
  1. CHANTIX [Suspect]
     Indication: SMOKING CESSATION THERAPY
     Route: 048
     Dates: start: 20070101
  2. CLONIDINE [Concomitant]
     Indication: HYPERTENSION
  3. CARDIZEM [Concomitant]
  4. SOMA [Concomitant]
     Indication: ARTHRITIS
  5. ZYRTEC [Concomitant]
     Indication: MULTIPLE ALLERGIES
  6. RHINOCORT [Concomitant]
  7. ZOLOFT [Concomitant]

REACTIONS (5)
  - ABNORMAL DREAMS [None]
  - DRUG INTOLERANCE [None]
  - FATIGUE [None]
  - MEMORY IMPAIRMENT [None]
  - SLEEP DISORDER [None]
